FAERS Safety Report 23135664 (Version 2)
Quarter: 2023Q4

REPORT INFORMATION
  Report Type: Spontaneous
  Country: US (occurrence: US)
  Receive Date: 20231101
  Receipt Date: 20231218
  Transmission Date: 20240110
  Serious: No
  Sender: FDA-Public Use
  Company Number: US-BRISTOL-MYERS SQUIBB COMPANY-2023-155952

PATIENT
  Age: 35 Year
  Sex: Female

DRUGS (2)
  1. SPRYCEL [Suspect]
     Active Substance: DASATINIB
     Indication: Chronic myeloid leukaemia
     Route: 048
     Dates: start: 202310
  2. IMATINIB MESYLATE [Concomitant]
     Active Substance: IMATINIB MESYLATE
     Indication: Product used for unknown indication

REACTIONS (8)
  - Fatigue [Unknown]
  - Oedema [Unknown]
  - Constipation [Unknown]
  - Infrequent bowel movements [Unknown]
  - Nausea [Unknown]
  - Vomiting [Unknown]
  - Gastrointestinal motility disorder [Unknown]
  - Arthralgia [Unknown]
